FAERS Safety Report 6437071-7 (Version None)
Quarter: 2009Q4

REPORT INFORMATION
  Report Type: 
  Country: None (occurrence: None)
  Receive Date: 20091110
  Receipt Date: 20071023
  Transmission Date: 20100525
  Serious: No
  Sender: FDA-Public Use
  Company Number: AEUSA200700252

PATIENT
  Age: 48 Year
  Sex: Female
  Weight: 95.2554 kg

DRUGS (11)
  1. GAMUNEX [Suspect]
     Indication: SELECTIVE IGG SUBCLASS DEFICIENCY
     Dosage: 2 GM;QD;SC
     Route: 058
     Dates: start: 20070630, end: 20071023
  2. TYLENOL (CAPLET) [Concomitant]
  3. ESTRADIOL [Concomitant]
  4. TESTOSTERONE [Concomitant]
  5. SYNTHROID [Concomitant]
  6. CYTOMEL [Concomitant]
  7. BACTROBAN  NASAL [Concomitant]
  8. LODINE XL [Concomitant]
  9. CARAFATE [Concomitant]
  10. ZANTAC [Concomitant]
  11. XANAX [Concomitant]

REACTIONS (2)
  - FATIGUE [None]
  - MYALGIA [None]
